FAERS Safety Report 8237967-X (Version None)
Quarter: 2012Q1

REPORT INFORMATION
  Report Type: 
  Country: None (occurrence: None)
  Receive Date: 20120327
  Receipt Date: 20120323
  Transmission Date: 20120608
  Serious: Yes (Other)
  Sender: FDA-Public Use
  Company Number: JP-JNJFOC-20120100505

PATIENT
  Sex: Male
  Weight: 66 kg

DRUGS (3)
  1. CORTICOSTEROIDS NOS [Concomitant]
     Indication: PRODUCT USED FOR UNKNOWN INDICATION
     Route: 061
  2. ZYRTEC [Concomitant]
     Indication: PSORIASIS
     Route: 048
     Dates: start: 20090729
  3. STELARA [Suspect]
     Indication: PSORIASIS
     Route: 058
     Dates: start: 20110602, end: 20110602

REACTIONS (1)
  - PSORIASIS [None]
